FAERS Safety Report 9564289 (Version 2)
Quarter: 2013Q4

REPORT INFORMATION
  Report Type: Spontaneous
  Country: US (occurrence: US)
  Receive Date: 20130930
  Receipt Date: 20131022
  Transmission Date: 20140711
  Serious: Yes (Hospitalization)
  Sender: FDA-Public Use
  Company Number: US-009507513-1309USA013188

PATIENT
  Age: 61 Year
  Sex: Male
  Weight: 115.96 kg

DRUGS (12)
  1. COZAAR [Suspect]
     Indication: BLOOD PRESSURE INCREASED
     Dosage: 100 MG, QD
     Route: 048
  2. COZAAR [Suspect]
     Dosage: 50 MG, QD
     Route: 048
  3. VALSARTAN [Concomitant]
     Dosage: 160 MG, QD
  4. ASPIRIN [Concomitant]
     Dosage: 325 MG, QD
  5. METFORMIN [Concomitant]
     Dosage: 1000 MG, BID
  6. ATENOLOL [Concomitant]
     Dosage: 75 MG, QD
  7. SIMVASTATIN TABLETS, USP [Concomitant]
     Dosage: 20 MG, QD
  8. RANITIDINE [Concomitant]
     Dosage: 150 MG, BID
  9. NOVOLIN [Concomitant]
     Dosage: NOVOLIN 70/30 75 UNITS EVERY MORNING
     Route: 058
  10. NOVOLIN [Concomitant]
     Dosage: NOVOLIN 70/30 85 UNITS EVERY EVENING
     Route: 058
  11. TEMAZEPAM [Concomitant]
     Dosage: 15 TO 30 MG DAILY AS NEEDED AT BEDTIME
  12. VITAMINS (UNSPECIFIED) [Concomitant]
     Dosage: UNK, QD

REACTIONS (1)
  - Immune thrombocytopenic purpura [Unknown]
